FAERS Safety Report 4951626-8 (Version None)
Quarter: 2006Q1

REPORT INFORMATION
  Report Type: 
  Country: None (occurrence: None)
  Receive Date: 20060317
  Receipt Date: 20060306
  Transmission Date: 20060701
  Serious: Yes (Other)
  Sender: FDA-Public Use
  Company Number: US200603001327

PATIENT
  Sex: Male

DRUGS (2)
  1. GEMZAR [Suspect]
  2. CISPLATIN [Concomitant]

REACTIONS (1)
  - HAEMOLYSIS [None]
